FAERS Safety Report 4644255-7 (Version None)
Quarter: 2005Q2

REPORT INFORMATION
  Report Type: 
  Country: None (occurrence: None)
  Receive Date: 20050425
  Receipt Date: 20050318
  Transmission Date: 20051028
  Serious: Yes (Other)
  Sender: FDA-Public Use
  Company Number: US-MERCK-0503USA03316

PATIENT
  Age: 66 Year
  Sex: Female
  Weight: 48 kg

DRUGS (12)
  1. FOSAMAX [Suspect]
     Indication: OSTEOPENIA
     Route: 048
  2. KEPPRA [Suspect]
     Indication: PETIT MAL EPILEPSY
     Route: 048
     Dates: start: 20050101, end: 20050101
  3. KEPPRA [Suspect]
     Route: 048
     Dates: start: 20050101
  4. KEPPRA [Suspect]
     Route: 048
     Dates: start: 20050101, end: 20050101
  5. KEPPRA [Suspect]
     Route: 048
     Dates: start: 20050101, end: 20050101
  6. KEPPRA [Suspect]
     Route: 048
     Dates: start: 20050320
  7. XANAX [Concomitant]
     Route: 048
  8. CARBATROL [Concomitant]
     Route: 065
     Dates: end: 20050101
  9. CIPROFLOXACIN HCL [Suspect]
     Indication: URINARY TRACT INFECTION
     Route: 048
     Dates: start: 20050315, end: 20050316
  10. CIPROFLOXACIN HCL [Suspect]
     Route: 048
     Dates: start: 20050316, end: 20050317
  11. CIPROFLOXACIN HCL [Suspect]
     Route: 048
     Dates: start: 20050317, end: 20050318
  12. TRILEPTAL [Concomitant]
     Route: 065
     Dates: start: 20050101, end: 20050101

REACTIONS (3)
  - DRUG INTERACTION [None]
  - PETIT MAL EPILEPSY [None]
  - URINARY TRACT INFECTION [None]
